FAERS Safety Report 16474526 (Version 1)
Quarter: 2019Q3

REPORT INFORMATION
  Report Type: Spontaneous
  Country: US (occurrence: US)
  Receive Date: 20190624
  Receipt Date: 20190624
  Transmission Date: 20191004
  Serious: Yes (Life-Threatening)
  Sender: FDA-Public Use
  Company Number: None

PATIENT
  Age: 50 Year
  Sex: Male
  Weight: 295 kg

DRUGS (1)
  1. LORAZEPAM INJECTION - [Suspect]
     Active Substance: LORAZEPAM
     Indication: ANXIETY
     Route: 042
     Dates: start: 20190525, end: 20190525

REACTIONS (3)
  - Pruritus [None]
  - Anxiety [None]
  - Urticaria [None]

NARRATIVE: CASE EVENT DATE: 20190525
